FAERS Safety Report 24122324 (Version 1)
Quarter: 2024Q3

REPORT INFORMATION
  Report Type: Spontaneous
  Country: US (occurrence: US)
  Receive Date: 20240722
  Receipt Date: 20240722
  Transmission Date: 20241017
  Serious: No
  Sender: SANOFI AVENTIS
  Company Number: US-SA-SAC20240717001368

PATIENT
  Age: 32 Year
  Sex: Male

DRUGS (2)
  1. ALPROLIX [Suspect]
     Active Substance: EFTRENONACOG ALFA
     Indication: Factor IX deficiency
     Dosage: 4010 U (3609-4411), BIW (SLOW IV PUSH EVERY MONDAY AND THURSDAY PRIOR TO WORK SHIFT EACH WEEK)
     Route: 042
     Dates: start: 202407
  2. ALPROLIX [Suspect]
     Active Substance: EFTRENONACOG ALFA
     Indication: Factor IX deficiency
     Dosage: 4010 U (3609-4411), BIW (SLOW IV PUSH EVERY MONDAY AND THURSDAY PRIOR TO WORK SHIFT EACH WEEK)
     Route: 042
     Dates: start: 202407

REACTIONS (1)
  - Haemorrhage [Not Recovered/Not Resolved]

NARRATIVE: CASE EVENT DATE: 20240701
